FAERS Safety Report 6712162-1 (Version None)
Quarter: 2010Q2

REPORT INFORMATION
  Report Type: 
  Country: None (occurrence: None)
  Receive Date: 20100505
  Receipt Date: 20100420
  Transmission Date: 20101027
  Serious: Yes (Death, Life-Threatening, Hospitalization, Other)
  Sender: FDA-Public Use
  Company Number: DE-ROCHE-683959

PATIENT
  Sex: Male
  Weight: 57 kg

DRUGS (2)
  1. BEVACIZUMAB [Suspect]
     Route: 042
     Dates: start: 20091028
  2. ROFERON-A [Concomitant]
     Indication: DRUG USE FOR UNKNOWN INDICATION
     Dates: start: 20091026

REACTIONS (6)
  - ABSCESS INTESTINAL [None]
  - DIVERTICULITIS [None]
  - LARGE INTESTINE PERFORATION [None]
  - MULTI-ORGAN FAILURE [None]
  - PERITONITIS [None]
  - SEPSIS [None]
